FAERS Safety Report 12798508 (Version 4)
Quarter: 2025Q4

REPORT INFORMATION
  Report Type: Spontaneous
  Country: US (occurrence: None)
  Receive Date: 20160930
  Receipt Date: 20251209
  Transmission Date: 20260118
  Serious: Yes (Other)
  Sender: AUROBINDO
  Company Number: US-MLMSERVICE-20160909-0419784-1

PATIENT
  Age: 20 Year
  Sex: Male

DRUGS (5)
  1. RISPERIDONE [Interacting]
     Active Substance: RISPERIDONE
     Indication: Product used for unknown indication
     Dosage: 1 MG, TWO TIMES A DAY
  2. RISPERIDONE [Interacting]
     Active Substance: RISPERIDONE
     Dosage: 2 MG, TWO TIMES A DAY
  3. HALOPERIDOL [Interacting]
     Active Substance: HALOPERIDOL
     Indication: Agitation
     Dosage: 5 MG, SINGLE DOSE
  4. CLONAZEPAM5 [Concomitant]
     Indication: Agitation
     Dosage: 2 MILLIGRAM, DAILY
     Route: 065
  5. BENZATROPINE5 [Concomitant]
     Indication: Product used for unknown indication
     Dosage: 1 MILLIGRAM, DAILY
     Route: 065

REACTIONS (2)
  - Priapism [Recovered/Resolved]
  - Drug interaction [Recovered/Resolved]
